FAERS Safety Report 14718145 (Version 3)
Quarter: 2018Q3

REPORT INFORMATION
  Report Type: Report from Study
  Country: US (occurrence: US)
  Receive Date: 20180404
  Receipt Date: 20180914
  Transmission Date: 20181010
  Serious: No
  Sender: FDA-Public Use
  Company Number: US-SA-2018SA041450

PATIENT
  Age: 30 Year
  Sex: Male

DRUGS (3)
  1. IBUPROFEN. [Suspect]
     Active Substance: IBUPROFEN
  2. DUPILUMAB [Suspect]
     Active Substance: DUPILUMAB
     Indication: ECZEMA
     Dosage: 300 MG, QOW
     Route: 058
     Dates: start: 2017
  3. DUPILUMAB [Suspect]
     Active Substance: DUPILUMAB
     Indication: DERMATITIS ATOPIC
     Dosage: 600 MG, 1X
     Route: 058
     Dates: start: 2017, end: 2017

REACTIONS (5)
  - Disease recurrence [Not Recovered/Not Resolved]
  - Urticaria [Recovered/Resolved]
  - Erythema [Not Recovered/Not Resolved]
  - Rash erythematous [Recovered/Resolved]
  - Genital burning sensation [Unknown]

NARRATIVE: CASE EVENT DATE: 2018
